FAERS Safety Report 19395101 (Version 1)
Quarter: 2021Q2

REPORT INFORMATION
  Report Type: Spontaneous
  Country: US (occurrence: US)
  Receive Date: 20210609
  Receipt Date: 20210609
  Transmission Date: 20210717
  Serious: No
  Sender: FDA-Public Use
  Company Number: US-ALLERGAN-2102191US

PATIENT
  Sex: Female

DRUGS (6)
  1. CALCIUM [Concomitant]
     Active Substance: CALCIUM
  2. HORMONES [Concomitant]
     Active Substance: UNSPECIFIED INGREDIENT
     Indication: HORMONE REPLACEMENT THERAPY
     Route: 067
  3. VIBERZI [Suspect]
     Active Substance: ELUXADOLINE
     Indication: ABDOMINAL DISTENSION
     Dosage: 100 MG, BID
     Dates: start: 20210109
  4. VIBERZI [Suspect]
     Active Substance: ELUXADOLINE
     Indication: FREQUENT BOWEL MOVEMENTS
  5. MULTIVITAMINS [Concomitant]
     Active Substance: VITAMINS
  6. PROBIOTICS [Concomitant]
     Active Substance: PROBIOTICS NOS

REACTIONS (5)
  - Dizziness [Not Recovered/Not Resolved]
  - Off label use [Unknown]
  - Vision blurred [Unknown]
  - Abdominal pain upper [Not Recovered/Not Resolved]
  - Constipation [Not Recovered/Not Resolved]

NARRATIVE: CASE EVENT DATE: 202101
